FAERS Safety Report 10024355 (Version 5)
Quarter: 2014Q2

REPORT INFORMATION
  Report Type: Report from Study
  Country: CA (occurrence: CA)
  Receive Date: 20140320
  Receipt Date: 20140505
  Transmission Date: 20141212
  Serious: Yes (Other)
  Sender: FDA-Public Use
  Company Number: CA-ROCHE-1328559

PATIENT
  Age: 58 Year
  Sex: Female

DRUGS (9)
  1. ACTEMRA [Suspect]
     Indication: RHEUMATOID ARTHRITIS
     Route: 042
     Dates: start: 20131205
  2. PLAQUENIL [Concomitant]
     Route: 065
  3. CELEBREX [Concomitant]
  4. LYRICA [Concomitant]
  5. MORPHINE [Concomitant]
  6. DILAUDID [Concomitant]
  7. FUROSEMIDE [Concomitant]
     Route: 065
     Dates: start: 201310
  8. ACETAMINOPHEN [Concomitant]
  9. LISINOPRIL [Concomitant]

REACTIONS (7)
  - Headache [Not Recovered/Not Resolved]
  - Inflammation [Not Recovered/Not Resolved]
  - Vomiting [Not Recovered/Not Resolved]
  - Fatigue [Recovered/Resolved]
  - Nausea [Unknown]
  - Peripheral swelling [Not Recovered/Not Resolved]
  - Pain [Not Recovered/Not Resolved]
